FAERS Safety Report 15322857 (Version 1)
Quarter: 2018Q3

REPORT INFORMATION
  Report Type: Spontaneous
  Country: US (occurrence: US)
  Receive Date: 20180821
  Receipt Date: 20180821
  Transmission Date: 20181010
  Serious: Yes (Hospitalization)
  Sender: FDA-Public Use
  Company Number: None

PATIENT
  Age: 74 Year
  Sex: Male
  Weight: 82.55 kg

DRUGS (11)
  1. HYDROCHLOROTHIAZIDE. [Concomitant]
     Active Substance: HYDROCHLOROTHIAZIDE
  2. CENTRUM SILVER MULTIVITAMIN [Concomitant]
  3. AVELOX [Concomitant]
     Active Substance: MOXIFLOXACIN HYDROCHLORIDE
  4. FLUTICASONE PROPIONATE. [Concomitant]
     Active Substance: FLUTICASONE PROPIONATE
  5. PANTOPRAZOLE SOD [Concomitant]
     Active Substance: PANTOPRAZOLE SODIUM
  6. NEXIUM [Concomitant]
     Active Substance: ESOMEPRAZOLE MAGNESIUM
  7. METOPROLOL SUCC ER [Concomitant]
     Active Substance: METOPROLOL SUCCINATE
  8. ATORVASTATIN [Concomitant]
     Active Substance: ATORVASTATIN
  9. ASPIRIN. [Concomitant]
     Active Substance: ASPIRIN
  10. OFEV [Suspect]
     Active Substance: NINTEDANIB
     Indication: PULMONARY FIBROSIS
     Dosage: ?          QUANTITY:2 DF DOSAGE FORM;?
     Route: 048
     Dates: start: 20170318, end: 20171010
  11. LOSARTAN. [Concomitant]
     Active Substance: LOSARTAN

REACTIONS (17)
  - Pulmonary fibrosis [None]
  - Headache [None]
  - Pancreatitis [None]
  - Fatigue [None]
  - Chest pain [None]
  - Flatulence [None]
  - Gallbladder disorder [None]
  - Weight decreased [None]
  - Blood pressure increased [None]
  - Cardiac disorder [None]
  - Liver function test increased [None]
  - Pneumonia [None]
  - Cerebrovascular accident [None]
  - Arterial disorder [None]
  - Diarrhoea [None]
  - Heart rate irregular [None]
  - Jaundice [None]

NARRATIVE: CASE EVENT DATE: 20170318
